FAERS Safety Report 5325681-X (Version None)
Quarter: 2007Q2

REPORT INFORMATION
  Report Type: 
  Country: None (occurrence: None)
  Receive Date: 20070515
  Receipt Date: 20070504
  Transmission Date: 20071010
  Serious: Yes (Hospitalization, Other)
  Sender: FDA-Public Use
  Company Number: US-PFIZER INC-2007036442

PATIENT
  Sex: Female

DRUGS (2)
  1. CELEBREX [Suspect]
     Route: 048
     Dates: start: 20030801, end: 20040301
  2. BEXTRA [Suspect]
     Dates: start: 20030801, end: 20040402

REACTIONS (1)
  - CEREBROVASCULAR ACCIDENT [None]
